FAERS Safety Report 6323215-4 (Version None)
Quarter: 2009Q3

REPORT INFORMATION
  Report Type: 
  Country: None (occurrence: None)
  Receive Date: 20090824
  Receipt Date: 20090310
  Transmission Date: 20100115
  Serious: No
  Sender: FDA-Public Use
  Company Number: US-ABBOTT-09P-163-0562480-00

PATIENT
  Sex: Female
  Weight: 71.732 kg

DRUGS (9)
  1. NIASPAN [Suspect]
     Indication: BLOOD CHOLESTEROL INCREASED
     Dates: start: 20081020
  2. NIASPAN [Suspect]
     Indication: LOW DENSITY LIPOPROTEIN INCREASED
  3. DIOVAN [Concomitant]
     Indication: HYPERTENSION
  4. TIAZAC [Concomitant]
     Indication: HYPERTENSION
  5. WOMEN'S MULTIVITAMIN [Concomitant]
     Indication: DRUG USE FOR UNKNOWN INDICATION
  6. VITAMIN B COMPLEX CAP [Concomitant]
     Indication: DRUG USE FOR UNKNOWN INDICATION
  7. GLUCOSAMINE [Concomitant]
     Indication: DRUG USE FOR UNKNOWN INDICATION
  8. CALCIUM WITH VITAMIN D [Concomitant]
     Indication: DRUG USE FOR UNKNOWN INDICATION
  9. BIOTIN [Concomitant]
     Indication: ALOPECIA

REACTIONS (4)
  - DYSPEPSIA [None]
  - ERYTHEMA [None]
  - FLUSHING [None]
  - PRURITUS [None]
